FAERS Safety Report 21581471 (Version 2)
Quarter: 2023Q1

REPORT INFORMATION
  Report Type: Report from Study
  Country: JP (occurrence: JP)
  Receive Date: 20221111
  Receipt Date: 20230131
  Transmission Date: 20230418
  Serious: Yes (Hospitalization, Other)
  Sender: FDA-Public Use
  Company Number: JP-TAKEDA-2022TJP076905

PATIENT
  Age: 47 Year
  Sex: Female
  Weight: 65.1 kg

DRUGS (10)
  1. BRIGATINIB [Suspect]
     Active Substance: BRIGATINIB
     Indication: Lung adenocarcinoma
     Dosage: 90 MILLIGRAM
     Route: 048
     Dates: start: 20221013, end: 20221019
  2. BRIGATINIB [Suspect]
     Active Substance: BRIGATINIB
     Indication: Metastases to central nervous system
     Dosage: 180 MILLIGRAM
     Route: 048
     Dates: start: 20221020, end: 20221031
  3. BRIGATINIB [Suspect]
     Active Substance: BRIGATINIB
     Dosage: 120 MILLIGRAM
     Route: 048
     Dates: start: 20221205, end: 20221214
  4. BRIGATINIB [Suspect]
     Active Substance: BRIGATINIB
     Dosage: 120 MILLIGRAM
     Route: 048
     Dates: start: 20221219
  5. AMPICILLIN SODIUM\SULBACTAM SODIUM [Suspect]
     Active Substance: AMPICILLIN SODIUM\SULBACTAM SODIUM
     Indication: Pneumonia
     Dosage: UNK
     Route: 065
     Dates: start: 20221102
  6. FYCOMPA [Suspect]
     Active Substance: PERAMPANEL
     Indication: Insomnia
     Dosage: 2 MILLIGRAM, QD
     Route: 065
     Dates: start: 20220304, end: 20230118
  7. FYCOMPA [Suspect]
     Active Substance: PERAMPANEL
     Indication: Seizure prophylaxis
  8. CALONAL [Concomitant]
     Active Substance: ACETAMINOPHEN
     Indication: Headache
     Dosage: 400 MILLIGRAM, TID
     Route: 065
     Dates: start: 20220306
  9. REBAMIPIDE [Concomitant]
     Active Substance: REBAMIPIDE
     Indication: Gastritis
     Dosage: 100 MILLIGRAM, TID
     Route: 065
     Dates: start: 20221012
  10. DAYVIGO [Concomitant]
     Active Substance: LEMBOREXANT
     Indication: Insomnia
     Dosage: 5 MILLIGRAM, QD
     Route: 065
     Dates: start: 20221005

REACTIONS (5)
  - Pulmonary toxicity [Recovering/Resolving]
  - Colitis [Not Recovered/Not Resolved]
  - Seizure [Not Recovered/Not Resolved]
  - Somnolence [Unknown]
  - Rash [Unknown]

NARRATIVE: CASE EVENT DATE: 20221101
